FAERS Safety Report 7329419-6 (Version None)
Quarter: 2011Q1

REPORT INFORMATION
  Report Type: 
  Country: None (occurrence: None)
  Receive Date: 20110303
  Receipt Date: 20110218
  Transmission Date: 20110831
  Serious: Yes (Other)
  Sender: FDA-Public Use
  Company Number: US-B.I. PHARMACEUTICALS,INC./RIDGEFIELD-2011-BP-04761PF

PATIENT
  Age: 70 Year
  Sex: Female
  Weight: 73.03 kg

DRUGS (7)
  1. SPIRIVA [Suspect]
     Indication: CHRONIC OBSTRUCTIVE PULMONARY DISEASE
     Dosage: 18 MCG
     Route: 055
     Dates: start: 20100101
  2. PROVENTIL [Concomitant]
  3. CHANTIX [Concomitant]
     Indication: SMOKING CESSATION THERAPY
     Dates: start: 20110218
  4. VULERA [Concomitant]
  5. HEART PILL [Concomitant]
     Indication: CARDIAC DISORDER
  6. WATER PILL [Concomitant]
     Indication: CARDIAC DISORDER
  7. STEROIDS [Concomitant]

REACTIONS (1)
  - WEIGHT INCREASED [None]
